FAERS Safety Report 13773297 (Version 1)
Quarter: 2017Q3

REPORT INFORMATION
  Report Type: Spontaneous
  Country: US (occurrence: US)
  Receive Date: 20170720
  Receipt Date: 20170720
  Transmission Date: 20171127
  Serious: No
  Sender: FDA-Public Use
  Company Number: US-GALDERMA-US16007936

PATIENT
  Age: 17 Year
  Sex: Male

DRUGS (3)
  1. EPIDUO FORTE [Concomitant]
     Active Substance: ADAPALENE\BENZOYL PEROXIDE
     Indication: ACNE
     Dosage: 0.3%/2.5%
     Route: 061
     Dates: start: 20161115
  2. ORACEA [Suspect]
     Active Substance: DOXYCYCLINE
     Indication: ACNE
     Dosage: 40 MG
     Route: 048
     Dates: start: 20161115, end: 20161115
  3. ACZONE (DAPSONE) [Concomitant]
     Indication: ACNE
     Route: 061
     Dates: start: 20161115

REACTIONS (6)
  - Rash macular [Recovered/Resolved]
  - Hypersensitivity [Recovering/Resolving]
  - Product use in unapproved indication [Recovered/Resolved]
  - Urticaria [Recovering/Resolving]
  - Drug administered to patient of inappropriate age [Recovered/Resolved]
  - Erythema [Recovered/Resolved]

NARRATIVE: CASE EVENT DATE: 20161115
